FAERS Safety Report 23046719 (Version 1)
Quarter: 2023Q4

REPORT INFORMATION
  Report Type: Spontaneous
  Country: US (occurrence: US)
  Receive Date: 20231009
  Receipt Date: 20231009
  Transmission Date: 20240109
  Serious: No
  Sender: FDA-Public Use
  Company Number: US-MYLANLABS-2023M1102839

PATIENT
  Sex: Female
  Weight: 60.33 kg

DRUGS (1)
  1. ESTRADIOL TRANSDERMAL SYSTEM [Suspect]
     Active Substance: ESTRADIOL
     Indication: Oestrogen replacement therapy
     Dosage: 0.037 MG/DAY (ONCE WEEKLY)
     Route: 062

REACTIONS (2)
  - Skin exfoliation [Unknown]
  - Product adhesion issue [Unknown]
